FAERS Safety Report 7935106-3 (Version None)
Quarter: 2011Q4

REPORT INFORMATION
  Report Type: 
  Country: None (occurrence: None)
  Receive Date: 20111117
  Receipt Date: 20111111
  Transmission Date: 20120403
  Serious: Yes (Life-Threatening)
  Sender: FDA-Public Use
  Company Number: 2011SP051956

PATIENT
  Age: 54 Year
  Sex: Female
  Weight: 69.4003 kg

DRUGS (13)
  1. INTERFERON [Suspect]
     Dosage: 96 MCG;QW;SC
     Route: 058
     Dates: start: 20100616
  2. INTERFERON [Suspect]
     Dosage: 96 MCG;QW;SC
     Route: 058
     Dates: start: 20100817, end: 20101016
  3. INTERFERON [Suspect]
     Dosage: 96 MCG;QW;SC
     Route: 058
     Dates: start: 20100726
  4. BOCEPREVIR [Suspect]
     Indication: HEPATITIS C
     Dosage: 800 MG;TID;PO
     Route: 048
     Dates: start: 20100817, end: 20101016
  5. BOCEPREVIR [Suspect]
     Indication: HEPATITIS C
     Dosage: 800 MG;TID;PO
     Route: 048
     Dates: start: 20100616
  6. RIBAVIRIN [Suspect]
     Indication: HEPATITIS C
     Dosage: 1000 MG;QD;PO
     Route: 048
     Dates: start: 20100817, end: 20101016
  7. RIBAVIRIN [Suspect]
     Indication: HEPATITIS C
     Dosage: 1000 MG;QD;PO
     Route: 048
     Dates: start: 20100616
  8. EPOGEN [Suspect]
     Indication: ANAEMIA
     Dosage: ;QW; SC
     Route: 058
     Dates: start: 20100817, end: 20101016
  9. EPOGEN [Suspect]
     Indication: ANAEMIA
     Dosage: ;QW; SC
     Route: 058
     Dates: start: 20100616
  10. EXTRA STRENGTH TYLENOL PM [Concomitant]
  11. AVEENO /00302501/ [Concomitant]
  12. TYLENOL (CAPLET) [Concomitant]
  13. ACETAMINOPHEN [Concomitant]

REACTIONS (1)
  - PANCYTOPENIA [None]
